FAERS Safety Report 5747966-5 (Version None)
Quarter: 2008Q2

REPORT INFORMATION
  Report Type: 
  Country: None (occurrence: None)
  Receive Date: 20080523
  Receipt Date: 20080513
  Transmission Date: 20081010
  Serious: Yes (Death)
  Sender: FDA-Public Use
  Company Number: AR-ROCHE-564204

PATIENT
  Sex: Male

DRUGS (1)
  1. XELODA [Suspect]
     Indication: COLON CANCER
     Route: 048
     Dates: start: 20071121, end: 20071215

REACTIONS (3)
  - ASTHENIA [None]
  - DISEASE PROGRESSION [None]
  - MUCOSAL INFLAMMATION [None]
